FAERS Safety Report 21948154 (Version 1)
Quarter: 2023Q1

REPORT INFORMATION
  Report Type: Spontaneous
  Country: GB (occurrence: GB)
  Receive Date: 20230203
  Receipt Date: 20230203
  Transmission Date: 20230418
  Serious: Yes (Other)
  Sender: FDA-Public Use
  Company Number: GB-MHRA-MED-202301202325321860-PJNSW

PATIENT
  Sex: Male

DRUGS (2)
  1. RAMIPRIL [Suspect]
     Active Substance: RAMIPRIL
     Indication: Cardiac murmur
     Dosage: 2.5 MILLIGRAM DAILY;
     Route: 065
     Dates: start: 20221210, end: 20221231
  2. LOSARTAN [Concomitant]
     Active Substance: LOSARTAN
     Indication: Product used for unknown indication

REACTIONS (2)
  - Sinusitis [Recovered/Resolved]
  - Anosmia [Recovering/Resolving]

NARRATIVE: CASE EVENT DATE: 20221215
